FAERS Safety Report 16256695 (Version 1)
Quarter: 2019Q2

REPORT INFORMATION
  Report Type: Other
  Country: IN (occurrence: IN)
  Receive Date: 20190430
  Receipt Date: 20190430
  Transmission Date: 20190711
  Serious: Yes (Other)
  Sender: FDA-Public Use
  Company Number: IN-PROVELL PHARMACEUTICALS-2066441

PATIENT
  Age: 70 Year
  Sex: Female

DRUGS (1)
  1. EUTHYROX [Suspect]
     Active Substance: LEVOTHYROXINE SODIUM
     Indication: POST PROCEDURAL HYPOTHYROIDISM

REACTIONS (2)
  - Thyroid dermatopathy [None]
  - Hyperthyroidism [None]
